FAERS Safety Report 24167597 (Version 1)
Quarter: 2024Q3

REPORT INFORMATION
  Report Type: Report from Study
  Country: US (occurrence: None)
  Receive Date: 20240802
  Receipt Date: 20240802
  Transmission Date: 20241016
  Serious: Yes (Other)
  Sender: ASTRAZENECA
  Company Number: 2021A614828

PATIENT
  Sex: Female

DRUGS (1)
  1. CALQUENCE [Suspect]
     Active Substance: ACALABRUTINIB
     Route: 048

REACTIONS (6)
  - Lymphoma [Unknown]
  - Sepsis [Unknown]
  - Contusion [Unknown]
  - Platelet count decreased [Unknown]
  - Oedema peripheral [Unknown]
  - Pain in extremity [Unknown]
